FAERS Safety Report 15892951 (Version 1)
Quarter: 2019Q1

REPORT INFORMATION
  Report Type: Report from Study
  Country: US (occurrence: US)
  Receive Date: 20190130
  Receipt Date: 20190130
  Transmission Date: 20190417
  Serious: No
  Sender: FDA-Public Use
  Company Number: US-EXELIXIS-CABO-18016648

PATIENT
  Age: 52 Year
  Sex: Female

DRUGS (10)
  1. ZYRTEC [Concomitant]
     Active Substance: CETIRIZINE HYDROCHLORIDE
  2. CABOMETYX [Suspect]
     Active Substance: CABOZANTINIB S-MALATE
     Indication: RENAL CELL CARCINOMA
     Dosage: 60 MG, QD
     Route: 048
     Dates: start: 201810, end: 2018
  3. OXYCODONE [Concomitant]
     Active Substance: OXYCODONE
  4. SPIRONOLACTONE. [Concomitant]
     Active Substance: SPIRONOLACTONE
  5. PERCOCET [Concomitant]
     Active Substance: ACETAMINOPHEN\OXYCODONE HYDROCHLORIDE
  6. PHENERGAN [Concomitant]
     Active Substance: PROMETHAZINE HYDROCHLORIDE
  7. FENTANYL. [Concomitant]
     Active Substance: FENTANYL
  8. LIDO PRILO CAINE PACK [Concomitant]
  9. DURAGESIC [Concomitant]
     Active Substance: FENTANYL
  10. ALBUTEROL. [Concomitant]
     Active Substance: ALBUTEROL

REACTIONS (6)
  - Spinal pain [Unknown]
  - Blood pressure increased [Unknown]
  - Pain in extremity [Unknown]
  - Mucosal inflammation [Unknown]
  - Vitreous floaters [Unknown]
  - Headache [Unknown]

NARRATIVE: CASE EVENT DATE: 20181023
